FAERS Safety Report 6213263-7 (Version None)
Quarter: 2009Q2

REPORT INFORMATION
  Report Type: 
  Country: None (occurrence: None)
  Receive Date: 20090603
  Receipt Date: 20090527
  Transmission Date: 20091009
  Serious: Yes (Life-Threatening, Hospitalization)
  Sender: FDA-Public Use
  Company Number: JP-MERCK-0905USA01895

PATIENT
  Age: 91 Year
  Sex: Female
  Weight: 34 kg

DRUGS (7)
  1. PEPCID [Suspect]
     Route: 048
     Dates: start: 20090510, end: 20090511
  2. PERDIPINE [Suspect]
     Indication: HYPERTENSION
     Route: 048
  3. MUCOSTA [Concomitant]
     Route: 048
  4. INDERAL [Suspect]
     Route: 048
  5. LIPASE AND TAKA-DIASTASE [Concomitant]
     Route: 048
  6. GENINAX [Suspect]
     Route: 048
     Dates: start: 20090510, end: 20090510
  7. BLESIN [Concomitant]
     Route: 065

REACTIONS (1)
  - ATRIOVENTRICULAR BLOCK COMPLETE [None]
